FAERS Safety Report 8381754-9 (Version None)
Quarter: 2012Q2

REPORT INFORMATION
  Report Type: 
  Country: None (occurrence: None)
  Receive Date: 20120524
  Receipt Date: 20120516
  Transmission Date: 20120825
  Serious: No
  Sender: FDA-Public Use
  Company Number: US-BIOGENIDEC-2012BI017279

PATIENT
  Sex: Male

DRUGS (1)
  1. AVONEX [Suspect]
     Indication: MULTIPLE SCLEROSIS
     Route: 030
     Dates: start: 20030728

REACTIONS (6)
  - ARTHRITIS [None]
  - INJECTION SITE PAIN [None]
  - COGNITIVE DISORDER [None]
  - MUSCLE SPASMS [None]
  - MUSCLE SPASTICITY [None]
  - FATIGUE [None]
